FAERS Safety Report 5070513-0 (Version None)
Quarter: 2006Q3

REPORT INFORMATION
  Report Type: 
  Country: None (occurrence: None)
  Receive Date: 20060804
  Receipt Date: 20060727
  Transmission Date: 20061208
  Serious: Yes (Hospitalization)
  Sender: FDA-Public Use
  Company Number: 2006UW15205

PATIENT
  Age: 80 Year
  Sex: Female

DRUGS (7)
  1. SEROQUEL [Suspect]
     Indication: AGITATION
     Route: 048
  2. SEROQUEL [Suspect]
     Indication: AGGRESSION
     Route: 048
  3. SEROQUEL [Suspect]
     Route: 048
  4. SEROQUEL [Suspect]
     Route: 048
  5. LITHIUM [Concomitant]
  6. PAXIL [Concomitant]
  7. LORAZEPAM [Concomitant]

REACTIONS (2)
  - FLUID RETENTION [None]
  - TREMOR [None]
